FAERS Safety Report 7179692-2 (Version None)
Quarter: 2010Q4

REPORT INFORMATION
  Report Type: 
  Country: None (occurrence: None)
  Receive Date: 20101221
  Receipt Date: 20101216
  Transmission Date: 20110411
  Serious: Yes (Death, Hospitalization, Other)
  Sender: FDA-Public Use
  Company Number: AU-ROCHE-730344

PATIENT
  Sex: Male
  Weight: 65 kg

DRUGS (4)
  1. ACTEMRA [Suspect]
     Dosage: FORM: INFUSION
     Route: 042
     Dates: start: 20090901, end: 20100701
  2. METHOTREXATE [Concomitant]
     Route: 048
  3. PREDNISONE [Concomitant]
     Route: 048
  4. ISONIAZID [Concomitant]
     Dates: start: 20090801, end: 20100213

REACTIONS (3)
  - ACUTE RESPIRATORY FAILURE [None]
  - INFLUENZA [None]
  - PNEUMONIA [None]
